FAERS Safety Report 11532778 (Version 1)
Quarter: 2015Q3

REPORT INFORMATION
  Report Type: Spontaneous
  Country: DE (occurrence: DE)
  Receive Date: 20150921
  Receipt Date: 20150921
  Transmission Date: 20151125
  Serious: Yes (Other)
  Sender: FDA-Public Use
  Company Number: GXKR2015DE004293

PATIENT
  Age: 38 Year
  Sex: Female

DRUGS (6)
  1. SEROQUEL [Suspect]
     Active Substance: QUETIAPINE FUMARATE
     Indication: MANIA
     Dosage: 200 MG/D, GW 9.5-38.6
     Route: 048
     Dates: start: 20140102
  2. LITHIUM. [Suspect]
     Active Substance: LITHIUM
     Indication: MANIA
     Dosage: 900 MG/D, GW 10.3-17.2
     Route: 048
     Dates: start: 20140107, end: 20140224
  3. VALPROATE SODIUM. [Suspect]
     Active Substance: VALPROATE SODIUM
     Indication: MANIA
     Dosage: 2300 MG/D, VARYING DOSAGE, GW 0-38.6
     Route: 048
  4. QUILONUM [Concomitant]
     Active Substance: LITHIUM CARBONATE
     Indication: MANIA
  5. QUETIAPINE [Concomitant]
     Active Substance: QUETIAPINE
     Indication: MANIA
     Dosage: 50-100 MG, PRN
     Route: 048
  6. L-THYROXIN [Concomitant]
     Active Substance: LEVOTHYROXINE SODIUM
     Indication: HYPOTHYROIDISM
     Dosage: 50 UG, UNK, 9.5-34.6 GW
     Route: 048
     Dates: start: 20140102

REACTIONS (4)
  - Gestational diabetes [Unknown]
  - Hypothyroidism [Unknown]
  - Exposure during pregnancy [Unknown]
  - Polyhydramnios [Unknown]
